FAERS Safety Report 10042598 (Version 1)
Quarter: 2014Q1

REPORT INFORMATION
  Report Type: Report from Study
  Country: MX (occurrence: MX)
  Receive Date: 20140327
  Receipt Date: 20140327
  Transmission Date: 20141002
  Serious: Yes (Other)
  Sender: FDA-Public Use
  Company Number: PHHY2014MX037358

PATIENT
  Age: 59 Year
  Sex: Female

DRUGS (2)
  1. CO-DIOVAN [Suspect]
     Indication: HYPERTENSION
     Dosage: 1 DF (160/12.5MG), DAILY
     Route: 048
     Dates: start: 201003
  2. CO-DIOVAN [Suspect]
     Dosage: 0.5 DF (160/12.5MG), DAILY
     Route: 048
     Dates: start: 201309

REACTIONS (7)
  - Weight decreased [Not Recovered/Not Resolved]
  - Feeling abnormal [Recovered/Resolved]
  - Mountain sickness acute [Unknown]
  - Colitis [Not Recovered/Not Resolved]
  - Drug prescribing error [Unknown]
  - Arrhythmia [Recovered/Resolved]
  - Wrong technique in drug usage process [Not Recovered/Not Resolved]
